FAERS Safety Report 20885906 (Version 1)
Quarter: 2022Q2

REPORT INFORMATION
  Report Type: Report from Study
  Country: RO (occurrence: RO)
  Receive Date: 20220527
  Receipt Date: 20220527
  Transmission Date: 20220721
  Serious: Yes (Death, Hospitalization, Other)
  Sender: FDA-Public Use
  Company Number: RO-ViiV Healthcare Limited-RO2022GSK084800

PATIENT

DRUGS (1)
  1. ABACAVIR SULFATE\LAMIVUDINE [Suspect]
     Active Substance: ABACAVIR SULFATE\LAMIVUDINE
     Indication: HIV infection CDC category C
     Dosage: 600/300 MG ONCE A DAY

REACTIONS (9)
  - Meningitis cryptococcal [Unknown]
  - Bacterial sepsis [Fatal]
  - Acute respiratory distress syndrome [Fatal]
  - Pyrexia [Unknown]
  - Nausea [Unknown]
  - Vomiting [Unknown]
  - Visual impairment [Unknown]
  - Fatigue [Unknown]
  - Treatment noncompliance [Unknown]
